FAERS Safety Report 4710988-7 (Version None)
Quarter: 2005Q3

REPORT INFORMATION
  Report Type: 
  Country: None (occurrence: None)
  Receive Date: 20050708
  Receipt Date: 20050708
  Transmission Date: 20060218
  Serious: Yes (Hospitalization)
  Sender: FDA-Public Use
  Company Number: None

PATIENT
  Age: 59 Year
  Sex: Female
  Weight: 68.9467 kg

DRUGS (1)
  1. ULTRAM [Suspect]
     Indication: MIGRAINE

REACTIONS (22)
  - ANOREXIA [None]
  - ANXIETY [None]
  - ASTHENIA [None]
  - CHILLS [None]
  - CONFUSIONAL STATE [None]
  - DIARRHOEA [None]
  - DIZZINESS [None]
  - DYSPNOEA [None]
  - FATIGUE [None]
  - FEELING HOT AND COLD [None]
  - HEART RATE INCREASED [None]
  - HYPERHIDROSIS [None]
  - HYPERTENSION [None]
  - INSOMNIA [None]
  - NERVOUSNESS [None]
  - PAIN [None]
  - PILOERECTION [None]
  - RESTLESSNESS [None]
  - RHINORRHOEA [None]
  - SNEEZING [None]
  - TREMOR [None]
  - YAWNING [None]
